FAERS Safety Report 8822378 (Version 1)
Quarter: 2012Q4

REPORT INFORMATION
  Report Type: 
  Country: AU (occurrence: AU)
  Receive Date: 20121003
  Receipt Date: 20121003
  Transmission Date: 20130627
  Serious: Yes (Other)
  Sender: FDA-Public Use
  Company Number: PHHY2012AU084915

PATIENT
  Age: 83 Year
  Sex: Female
  Weight: 36 kg

DRUGS (3)
  1. ACLASTA [Suspect]
     Dosage: 5 mg
  2. PREMARIN [Concomitant]
     Indication: MENOPAUSAL SYMPTOMS
     Dosage: 0.3 daily
     Route: 048
     Dates: start: 2003
  3. SIFROL [Concomitant]
     Indication: RESTLESS LEGS SYNDROME
     Route: 048
     Dates: start: 20110111

REACTIONS (5)
  - Cellulitis [Recovered/Resolved]
  - Gastrooesophageal reflux disease [Recovered/Resolved]
  - Malaise [Recovered/Resolved]
  - Arthralgia [Recovered/Resolved]
  - Vitamin D deficiency [Unknown]
